FAERS Safety Report 18023839 (Version 9)
Quarter: 2020Q4

REPORT INFORMATION
  Report Type: Report from Study
  Country: US (occurrence: US)
  Receive Date: 20200715
  Receipt Date: 20201126
  Transmission Date: 20210113
  Serious: Yes (Hospitalization, Other)
  Sender: FDA-Public Use
  Company Number: US-ROCHE-2639261

PATIENT
  Age: 69 Year
  Sex: Female
  Weight: 58.5 kg

DRUGS (13)
  1. OBINUTUZUMAB. [Suspect]
     Active Substance: OBINUTUZUMAB
     Indication: CHRONIC LYMPHOCYTIC LEUKAEMIA
     Dosage: 100 MG IV ON DAY 1, CYCLE 1 AND 900 MG IV ON DAY 2, CYCLE 1?1000 MG IV ON DAY 8, CYCLE 1 1000 MG IV
     Route: 042
     Dates: start: 20200219, end: 20200521
  2. IBRUTINIB [Suspect]
     Active Substance: IBRUTINIB
     Indication: CHRONIC LYMPHOCYTIC LEUKAEMIA
     Dosage: 420 MG PO QD ON DAYS 1-28, CYCLES 1-19
     Route: 048
     Dates: start: 20200219, end: 20200423
  3. OBINUTUZUMAB. [Suspect]
     Active Substance: OBINUTUZUMAB
     Dosage: ON 21/MAY/2020, HE RECEIVED THE RECENT DOSE OF OBINUTUZUMAB.
     Route: 042
     Dates: start: 20200521, end: 20200521
  4. VENETOCLAX. [Suspect]
     Active Substance: VENETOCLAX
     Dosage: TOTAL DOSE ADMINISTERED THIS COURSE:2590MG?DRUG INTERRUPTED FROM 21/MAY/2020 TO 17/JUN/2020
     Route: 048
     Dates: start: 20200423, end: 20200520
  5. VENETOCLAX. [Suspect]
     Active Substance: VENETOCLAX
     Dosage: LAST ADMINISTERED DATE: 05/AUG/2020
     Route: 048
     Dates: start: 20200731, end: 20200806
  6. IBRUTINIB [Suspect]
     Active Substance: IBRUTINIB
     Dosage: TOTAL DOSE ADMINISTERED THIS COURSE: 11760MG?LAST ADMINISTERED DATE: 20/MAY/2020
     Route: 048
     Dates: start: 20200423, end: 20200520
  7. OBINUTUZUMAB. [Suspect]
     Active Substance: OBINUTUZUMAB
     Route: 042
     Dates: start: 20200423, end: 20200520
  8. OBINUTUZUMAB. [Suspect]
     Active Substance: OBINUTUZUMAB
     Route: 042
     Dates: start: 20200730, end: 20200730
  9. VENETOCLAX. [Suspect]
     Active Substance: VENETOCLAX
     Indication: CHRONIC LYMPHOCYTIC LEUKAEMIA
     Dosage: 20 MG ON DAYS 1-7 CYCLE 3, 50 MG PO QD DAYS 8-14, CYCLE 3, 100 MG PO QD DAYS 15-21, CYCLE 3, 200 MG
     Route: 048
     Dates: start: 20200219, end: 20200520
  10. OBINUTUZUMAB. [Suspect]
     Active Substance: OBINUTUZUMAB
     Route: 042
     Dates: start: 20200702, end: 20200702
  11. VENETOCLAX. [Suspect]
     Active Substance: VENETOCLAX
     Dosage: LAST ADMINISTERED DATE: 29/SEP/2020
     Route: 048
     Dates: start: 20200916, end: 20200929
  12. VENETOCLAX. [Suspect]
     Active Substance: VENETOCLAX
     Route: 048
     Dates: start: 20200702, end: 20200707
  13. IBRUTINIB [Suspect]
     Active Substance: IBRUTINIB
     Dosage: TOTAL DOSE ADMINISTERED THIS COURSE: 2520MG: DRUG INTERRUPTED?LAST DOSE ADMINISTERED ON 17/JUN/2020
     Route: 048
     Dates: start: 20200521, end: 20200617

REACTIONS (10)
  - Haemorrhage intracranial [Recovered/Resolved]
  - Subdural haematoma [Unknown]
  - Platelet count decreased [Unknown]
  - Febrile neutropenia [Recovered/Resolved]
  - Neutrophil count decreased [Recovered/Resolved]
  - White blood cell count decreased [Recovered/Resolved]
  - Neutrophil count decreased [Recovered/Resolved]
  - Pneumonitis [Recovered/Resolved]
  - Pneumonia [Recovered/Resolved]
  - White blood cell count decreased [Recovered/Resolved]

NARRATIVE: CASE EVENT DATE: 20200527
